FAERS Safety Report 6108957-8 (Version None)
Quarter: 2009Q1

REPORT INFORMATION
  Report Type: 
  Country: None (occurrence: None)
  Receive Date: 20090310
  Receipt Date: 20090224
  Transmission Date: 20090719
  Serious: Yes (Hospitalization)
  Sender: FDA-Public Use
  Company Number: GB-ELI_LILLY_AND_COMPANY-GB200901004340

PATIENT
  Sex: Female

DRUGS (6)
  1. FORTEO [Suspect]
     Indication: FRACTURE
     Dosage: UNK, UNKNOWN
     Route: 065
     Dates: start: 20071105, end: 20080627
  2. DIGOXIN [Concomitant]
     Dosage: 125 UG, UNKNOWN
     Route: 048
     Dates: start: 20080402
  3. SECURON [Concomitant]
     Dosage: 240 MG +120MG DAILY
     Route: 048
  4. SECURON [Concomitant]
     Dosage: 240MG + 120MG DAILY
     Route: 048
  5. LISINOPRIL [Concomitant]
     Dosage: 2.5 MG, UNKNOWN
     Route: 048
  6. FRUSEMIDE [Concomitant]
     Dosage: 40 MG, UNKNOWN
     Route: 048

REACTIONS (2)
  - ATRIAL FIBRILLATION [None]
  - PULMONARY OEDEMA [None]
